FAERS Safety Report 5778056-3 (Version None)
Quarter: 2008Q2

REPORT INFORMATION
  Report Type: 
  Country: None (occurrence: None)
  Receive Date: 20080619
  Receipt Date: 20080612
  Transmission Date: 20081010
  Serious: Yes (Hospitalization)
  Sender: FDA-Public Use
  Company Number: US-WYE-H04459508

PATIENT
  Sex: Male
  Weight: 89.89 kg

DRUGS (2)
  1. ZOSYN [Suspect]
     Indication: DIVERTICULITIS
     Route: 042
     Dates: start: 20080610, end: 20080611
  2. ADVAIR DISKUS 100/50 [Concomitant]
     Dosage: UNKNOWN
     Route: 045

REACTIONS (2)
  - NEPHROLITHIASIS [None]
  - OVERDOSE [None]
